FAERS Safety Report 5088492-9 (Version None)
Quarter: 2006Q3

REPORT INFORMATION
  Report Type: 
  Country: None (occurrence: None)
  Receive Date: 20060727
  Receipt Date: 20060520
  Transmission Date: 20061208
  Serious: No
  Sender: FDA-Public Use
  Company Number: 2006066825

PATIENT
  Weight: 92.9874 kg

DRUGS (11)
  1. LYRICA [Suspect]
     Indication: HERPES ZOSTER
     Dosage: 105 MG (75 MG, 2 IN 1 D) UNKNOWN
     Route: 065
     Dates: start: 20060503
  2. LYRICA [Suspect]
     Indication: NEURALGIA
     Dosage: 105 MG (75 MG, 2 IN 1 D) UNKNOWN
     Route: 065
     Dates: start: 20060503
  3. WARFARIN SODIUM [Concomitant]
  4. PREDNISONE TAB [Concomitant]
  5. AMBIEN [Concomitant]
  6. CALCIUM (CALCIUM) [Concomitant]
  7. DEXAMETHASONE TAB [Concomitant]
  8. ALL OTHER THERAPEUTIC PRODUCTS (ALL OTHER THERAPEUTIC PRODUCTS) [Concomitant]
  9. LUPRON [Concomitant]
  10. ZOMETA [Concomitant]
  11. CHEMOTHERAPY NOS (CHEMOTHERAPY NOS) [Concomitant]

REACTIONS (1)
  - DRUG INEFFECTIVE [None]
